FAERS Safety Report 9935013 (Version 3)
Quarter: 2014Q2

REPORT INFORMATION
  Report Type: Spontaneous
  Country: US (occurrence: US)
  Receive Date: 20140228
  Receipt Date: 20140424
  Transmission Date: 20141212
  Serious: Yes (Other)
  Sender: FDA-Public Use
  Company Number: US-PFIZER INC-2014054638

PATIENT
  Age: 61 Year
  Sex: Female
  Weight: 56.24 kg

DRUGS (13)
  1. DETROL LA [Suspect]
     Dosage: UNK, 1X/DAY
     Route: 048
     Dates: end: 2014
  2. NEXIUM [Concomitant]
     Dosage: 40 MG, DAILY
  3. PLAQUENIL [Concomitant]
     Dosage: UNK
  4. REGLAN [Concomitant]
     Dosage: 10 MG, 2X/DAY
  5. LOSARTAN POTASSIUM W/HYDROCHLOROTHIAZIDE [Concomitant]
     Indication: BLOOD PRESSURE ABNORMAL
     Dosage: 50/12.5MG, 1X/DAY
  6. COUMADINE [Concomitant]
     Dosage: 1 MG, UNK
  7. BUSPIRONE [Concomitant]
     Dosage: UNK
  8. CYCLOBENZAPRINE [Concomitant]
     Dosage: 10 MG, 4X/DAY
  9. HYDROCHLOROTHIAZIDE [Concomitant]
     Dosage: 25 MG, UNK
  10. CELEBREX [Concomitant]
     Dosage: 200 MG, 1X/DAY
  11. XANAX [Concomitant]
     Dosage: 2 MG, 4X/DAY
  12. HYDROCORTISONE [Concomitant]
     Dosage: UNK
  13. PREMARIN [Concomitant]
     Dosage: 0.625 MG, UNK

REACTIONS (2)
  - Neoplasm malignant [Unknown]
  - Drug ineffective [Unknown]
